FAERS Safety Report 8909432 (Version 1)
Quarter: 2012Q4

REPORT INFORMATION
  Report Type: 
  Country: PT (occurrence: PT)
  Receive Date: 20121115
  Receipt Date: 20121115
  Transmission Date: 20130627
  Serious: Yes (Death, Other)
  Sender: FDA-Public Use
  Company Number: PT-MILLENNIUM PHARMACEUTICALS, INC.-2012-07990

PATIENT

DRUGS (5)
  1. VELCADE [Suspect]
     Indication: MULTIPLE MYELOMA
     Dosage: 1.3 mg/m2, UNK
     Route: 065
  2. VELCADE [Suspect]
     Dosage: 1.0 mg/m2, UNK
     Route: 065
  3. MELPHALAN [Concomitant]
     Indication: MULTIPLE MYELOMA
     Dosage: 9 mg/m2, UNK
     Route: 065
  4. PREDNISOLONE [Concomitant]
     Indication: MULTIPLE MYELOMA
     Dosage: 100 mg, UNK
     Route: 065
  5. ACYCLOVIR                          /00587301/ [Concomitant]
     Indication: PROPHYLAXIS

REACTIONS (3)
  - Sepsis [Fatal]
  - Bone marrow toxicity [Unknown]
  - Neuropathy peripheral [Unknown]
